FAERS Safety Report 9034271 (Version 1)
Quarter: 2013Q1

REPORT INFORMATION
  Report Type: Spontaneous
  Country: US (occurrence: None)
  Receive Date: 20130116
  Receipt Date: 20130116
  Transmission Date: 20140127
  Serious: Yes (Death)
  Sender: FDA-Public Use
  Company Number: None

PATIENT
  Age: 52 Year
  Sex: Female
  Weight: 70.31 kg

DRUGS (1)
  1. NEURONTIN [Suspect]

REACTIONS (5)
  - Mood altered [None]
  - Irritability [None]
  - Completed suicide [None]
  - Gun shot wound [None]
  - Drug withdrawal syndrome [None]
